FAERS Safety Report 6697554-1 (Version None)
Quarter: 2010Q2

REPORT INFORMATION
  Report Type: 
  Country: None (occurrence: None)
  Receive Date: 20100426
  Receipt Date: 20100211
  Transmission Date: 20101027
  Serious: No
  Sender: FDA-Public Use
  Company Number: US-ABBOTT-10P-163-0626354-00

PATIENT
  Sex: Female
  Weight: 52.21 kg

DRUGS (1)
  1. AZMACORT [Suspect]
     Indication: ASTHMA
     Dates: start: 19900101, end: 20100206

REACTIONS (2)
  - PRURITUS GENERALISED [None]
  - RASH MACULAR [None]
